FAERS Safety Report 5740392-4 (Version None)
Quarter: 2008Q2

REPORT INFORMATION
  Report Type: 
  Country: None (occurrence: None)
  Receive Date: 20080516
  Receipt Date: 20080509
  Transmission Date: 20081010
  Serious: Yes (Hospitalization)
  Sender: FDA-Public Use
  Company Number: AU-ABBOTT-08P-008-0451083-00

PATIENT

DRUGS (3)
  1. HUMIRA [Suspect]
     Indication: CROHN'S DISEASE
     Dosage: NOT REPORTED
  2. AZATHIOPRINE [Concomitant]
     Indication: CROHN'S DISEASE
     Dosage: NOT REPORTED
  3. PREDNISOLONE [Concomitant]
     Indication: CROHN'S DISEASE
     Dosage: NOT REPORTED

REACTIONS (1)
  - CROHN'S DISEASE [None]
